FAERS Safety Report 9635043 (Version 1)
Quarter: 2013Q4

REPORT INFORMATION
  Report Type: Report from Study
  Country: DE (occurrence: DE)
  Receive Date: 20131021
  Receipt Date: 20131021
  Transmission Date: 20140711
  Serious: Yes (Other)
  Sender: FDA-Public Use
  Company Number: DE-ROCHE-1291294

PATIENT
  Age: 88 Year
  Sex: Female

DRUGS (2)
  1. RANIBIZUMAB [Suspect]
     Indication: AGE-RELATED MACULAR DEGENERATION
     Route: 050
     Dates: start: 20120521
  2. RANIBIZUMAB [Suspect]
     Indication: RETINAL VEIN OCCLUSION

REACTIONS (1)
  - Retinal haemorrhage [Not Recovered/Not Resolved]
